FAERS Safety Report 9198777 (Version 1)
Quarter: 2013Q1

REPORT INFORMATION
  Report Type: Spontaneous
  Country: US (occurrence: None)
  Receive Date: 20130327
  Receipt Date: 20130327
  Transmission Date: 20140127
  Serious: Yes (Hospitalization)
  Sender: FDA-Public Use
  Company Number: None

PATIENT
  Age: 71 Year
  Sex: Male

DRUGS (1)
  1. SUTENT 50MG [Suspect]
     Dosage: 50MG DAILY X 4 WEEKS, OFF2 ORAL
     Route: 048
     Dates: start: 20121128

REACTIONS (3)
  - VIIth nerve paralysis [None]
  - Infection [None]
  - Arterial disorder [None]
